FAERS Safety Report 8002494-1 (Version None)
Quarter: 2011Q4

REPORT INFORMATION
  Report Type: 
  Country: None (occurrence: None)
  Receive Date: 20111222
  Receipt Date: 20111130
  Transmission Date: 20120403
  Serious: Yes (Hospitalization)
  Sender: FDA-Public Use
  Company Number: IT-PFIZER INC-2011293116

PATIENT
  Age: 79 Year
  Sex: Male

DRUGS (10)
  1. TRENTAL [Suspect]
     Indication: PROPHYLAXIS
     Dosage: 800 MG, 1X/DAY
     Route: 048
     Dates: start: 20080101
  2. PREDNISONE TAB [Suspect]
     Indication: CONNECTIVE TISSUE DISORDER
     Dosage: 5 MG, 1X/DAY
     Route: 048
     Dates: start: 20080101
  3. LAMIVUDINE [Suspect]
     Indication: HEPATITIS B
     Dosage: 100 MG, 1X/DAY
     Route: 048
     Dates: start: 20080101
  4. ACETYLSALICYLIC ACID [Concomitant]
     Indication: CARDIOVASCULAR EVENT PROPHYLAXIS
     Dosage: 100 MG/DAY
     Route: 048
  5. RAMIPRIL [Suspect]
     Dosage: 5 MG, 1X/DAY
     Route: 048
     Dates: start: 20080101
  6. OMEPRAZOLE [Suspect]
     Indication: PROPHYLAXIS AGAINST GASTROINTESTINAL ULCER
     Dosage: 20 MG, 1X/DAY
     Route: 048
     Dates: start: 20080101
  7. PLAQUENIL [Suspect]
     Indication: CONNECTIVE TISSUE DISORDER
     Dosage: 200 MG, 1X/DAY
     Route: 048
     Dates: start: 20080101
  8. TRAMADOL HCL [Suspect]
     Indication: ANALGESIC THERAPY
     Dosage: 100 MG, AS NEEDED
     Route: 048
     Dates: start: 20080101, end: 20110906
  9. SPIRIVA [Concomitant]
     Indication: CHRONIC OBSTRUCTIVE PULMONARY DISEASE
     Route: 055
  10. LASIX [Suspect]
     Indication: HYPERTENSION
     Dosage: .5 DF, 1X/DAY
     Route: 048
     Dates: start: 20080101

REACTIONS (5)
  - BRADYPHRENIA [None]
  - INAPPROPRIATE ANTIDIURETIC HORMONE SECRETION [None]
  - HYPOTENSION [None]
  - PAIN [None]
  - DIZZINESS [None]
